FAERS Safety Report 24760686 (Version 7)
Quarter: 2025Q2

REPORT INFORMATION
  Report Type: Report from Study
  Country: CA (occurrence: CA)
  Receive Date: 20241220
  Receipt Date: 20250626
  Transmission Date: 20250717
  Serious: Yes (Other)
  Sender: LUNDBECK
  Company Number: CA-LUNDBECK-DKLU4007940

PATIENT
  Age: 35 Year
  Sex: Female

DRUGS (13)
  1. VYEPTI [Suspect]
     Active Substance: EPTINEZUMAB-JJMR
     Indication: Migraine
     Dosage: 100 MILLIGRAM
     Route: 041
     Dates: start: 20240530, end: 20250617
  2. VYEPTI [Suspect]
     Active Substance: EPTINEZUMAB-JJMR
     Dosage: 300 MILLIGRAM
     Route: 041
     Dates: start: 20240912, end: 20250414
  3. NAPROXEN [Concomitant]
     Active Substance: NAPROXEN
     Indication: Product used for unknown indication
  4. CAMBIA [Concomitant]
     Active Substance: DICLOFENAC POTASSIUM
     Indication: Product used for unknown indication
  5. UBRELVY [Concomitant]
     Active Substance: UBROGEPANT
     Indication: Product used for unknown indication
  6. ZOMIG [Concomitant]
     Active Substance: ZOLMITRIPTAN
     Indication: Product used for unknown indication
  7. VITAMIN D3 [Concomitant]
     Active Substance: CHOLECALCIFEROL
     Indication: Product used for unknown indication
     Dosage: 1000 INTERNATIONAL UNIT
  8. VIT B2 [Concomitant]
     Indication: Product used for unknown indication
     Dosage: 400 MILLIGRAM
  9. DIETARY SUPPLEMENT\UBIDECARENONE [Concomitant]
     Active Substance: DIETARY SUPPLEMENT\UBIDECARENONE
     Indication: Product used for unknown indication
     Dosage: 100 MILLIGRAM
  10. MAGNESIUM OXIDE [Concomitant]
     Active Substance: MAGNESIUM OXIDE
     Indication: Product used for unknown indication
     Dosage: 250 MILLIGRAM
  11. FISH OIL [Concomitant]
     Active Substance: FISH OIL
     Indication: Product used for unknown indication
     Dosage: 900 MILLIGRAM
  12. IMITREX [Concomitant]
     Active Substance: SUMATRIPTAN SUCCINATE
     Indication: Product used for unknown indication
  13. TRAZODONE [Concomitant]
     Active Substance: TRAZODONE HYDROCHLORIDE
     Indication: Product used for unknown indication

REACTIONS (17)
  - Dyspnoea at rest [Unknown]
  - Dizziness [Not Recovered/Not Resolved]
  - Disorientation [Not Recovered/Not Resolved]
  - Drug hypersensitivity [Recovering/Resolving]
  - Raynaud^s phenomenon [Not Recovered/Not Resolved]
  - Blood pressure fluctuation [Not Recovered/Not Resolved]
  - Dysphagia [Not Recovered/Not Resolved]
  - Pruritus [Unknown]
  - Rash [Unknown]
  - Palpitations [Unknown]
  - Flushing [Unknown]
  - Nasal congestion [Unknown]
  - Rhinorrhoea [Unknown]
  - Constipation [Unknown]
  - Decreased appetite [Unknown]
  - Balance disorder [Unknown]
  - Rhinitis [Unknown]

NARRATIVE: CASE EVENT DATE: 20240901
